FAERS Safety Report 10236886 (Version 1)
Quarter: 2014Q2

REPORT INFORMATION
  Report Type: Spontaneous
  Country: US (occurrence: US)
  Receive Date: 20140613
  Receipt Date: 20140613
  Transmission Date: 20141212
  Serious: Yes (Other)
  Sender: FDA-Public Use
  Company Number: US-PFIZER INC-2014160434

PATIENT
  Age: 63 Year
  Sex: Female
  Weight: 66 kg

DRUGS (3)
  1. NORPACE [Suspect]
     Indication: MITRAL VALVE PROLAPSE
     Dosage: 150 MG, 3X/DAY
     Route: 048
     Dates: start: 1977
  2. NORPACE [Suspect]
     Indication: ARRHYTHMIA
  3. ACEBUTOLOL [Concomitant]
     Dosage: UNK

REACTIONS (1)
  - Breast cancer female [Unknown]
